FAERS Safety Report 6800568-1 (Version None)
Quarter: 2010Q2

REPORT INFORMATION
  Report Type: 
  Country: None (occurrence: None)
  Receive Date: 20100625
  Receipt Date: 20100625
  Transmission Date: 20101027
  Serious: Yes (Other)
  Sender: FDA-Public Use
  Company Number: None

PATIENT
  Sex: Female
  Weight: 53.0709 kg

DRUGS (1)
  1. BISOPROLOL FUMARATE AND HYDROCHLOROTHIAZIDE [Suspect]
     Indication: HYPERTENSION
     Dosage: ONE TABLE ONE TIME DAILY PO
     Route: 048
     Dates: start: 20100616, end: 20100622

REACTIONS (3)
  - HEADACHE [None]
  - HYPOAESTHESIA [None]
  - PRODUCT SUBSTITUTION ISSUE [None]
